FAERS Safety Report 4864629-9 (Version None)
Quarter: 2005Q4

REPORT INFORMATION
  Report Type: 
  Country: None (occurrence: None)
  Receive Date: 20051201
  Receipt Date: 20050701
  Transmission Date: 20060501
  Serious: No
  Sender: FDA-Public Use
  Company Number: 2005PV000205

PATIENT
  Age: 42 Year
  Sex: Female
  Weight: 98.8842 kg

DRUGS (8)
  1. BYETTA [Suspect]
     Indication: DIABETES MELLITUS NON-INSULIN-DEPENDENT
     Dosage: 5 UG; QD; SC; SEE IMAGE
     Route: 058
     Dates: start: 20050601, end: 20050629
  2. BYETTA [Suspect]
     Indication: DIABETES MELLITUS NON-INSULIN-DEPENDENT
     Dosage: 5 UG; QD; SC; SEE IMAGE
     Route: 058
     Dates: start: 20050630
  3. AMARYL [Concomitant]
  4. LASIX [Concomitant]
  5. POTASSIUM [Concomitant]
  6. PROTONIX [Concomitant]
  7. LISINOPRIL [Concomitant]
  8. LANTUS [Concomitant]

REACTIONS (5)
  - DIZZINESS [None]
  - FATIGUE [None]
  - MIGRAINE [None]
  - NAUSEA [None]
  - THERAPEUTIC RESPONSE DECREASED [None]
